FAERS Safety Report 6037502-0 (Version None)
Quarter: 2009Q1

REPORT INFORMATION
  Report Type: 
  Country: None (occurrence: None)
  Receive Date: 20090114
  Receipt Date: 20090106
  Transmission Date: 20090719
  Serious: Yes (Other)
  Sender: FDA-Public Use
  Company Number: US-GENENTECH-275120

PATIENT

DRUGS (1)
  1. AVASTIN [Suspect]
     Indication: MACULAR DEGENERATION

REACTIONS (1)
  - VITREOUS HAEMORRHAGE [None]
